FAERS Safety Report 5828418-0 (Version None)
Quarter: 2008Q3

REPORT INFORMATION
  Report Type: 
  Country: None (occurrence: None)
  Receive Date: 20080729
  Receipt Date: 20080729
  Transmission Date: 20090109
  Serious: Yes (Disabling, Other)
  Sender: FDA-Public Use
  Company Number: None

PATIENT
  Age: 28 Year
  Sex: Female
  Weight: 62.1428 kg

DRUGS (3)
  1. EFFEXOR XR [Suspect]
     Indication: DEPRESSION
     Dosage: 2 DAILY PO
     Route: 048
     Dates: start: 20060501, end: 20070901
  2. ZOLOFT [Suspect]
     Indication: DEPRESSION
     Dosage: 1 1/2 DAILY PO
     Route: 048
     Dates: start: 20020401, end: 20060101
  3. LEXAPRO [Concomitant]

REACTIONS (14)
  - ALOPECIA [None]
  - AMNESIA [None]
  - DARK CIRCLES UNDER EYES [None]
  - DEPRESSION [None]
  - DISTURBANCE IN ATTENTION [None]
  - DRUG TOXICITY [None]
  - DRY SKIN [None]
  - FEELING ABNORMAL [None]
  - HYPERHIDROSIS [None]
  - MOOD SWINGS [None]
  - NIGHTMARE [None]
  - PARAESTHESIA [None]
  - PERSONALITY CHANGE [None]
  - WEIGHT INCREASED [None]
